FAERS Safety Report 5314243-6 (Version None)
Quarter: 2007Q2

REPORT INFORMATION
  Report Type: 
  Country: None (occurrence: None)
  Receive Date: 20070425
  Receipt Date: 20070410
  Transmission Date: 20071010
  Serious: Yes (Other)
  Sender: FDA-Public Use
  Company Number: 16304

PATIENT
  Age: 73 Year
  Sex: Female

DRUGS (3)
  1. CYTARABINE [Suspect]
     Indication: MYELOID LEUKAEMIA
  2. NEUPOGEN [Suspect]
     Indication: NEUTROPENIA
  3. IDARUBICIN HCL [Concomitant]

REACTIONS (2)
  - FEBRILE NEUTROPENIA [None]
  - HIDRADENITIS [None]
